FAERS Safety Report 8026291-6 (Version None)
Quarter: 2012Q1

REPORT INFORMATION
  Report Type: 
  Country: None (occurrence: None)
  Receive Date: 20120105
  Receipt Date: 20111213
  Transmission Date: 20120608
  Serious: No
  Sender: FDA-Public Use
  Company Number: US-ABBOTT-11P-163-0883123-00

PATIENT
  Age: 41 Year
  Sex: Female
  Weight: 72.64 kg

DRUGS (3)
  1. SYNTHROID [Suspect]
     Indication: PRIMARY HYPOTHYROIDISM
     Route: 048
     Dates: start: 20111010, end: 20111024
  2. SYNTHROID [Suspect]
     Indication: PRIMARY HYPOTHYROIDISM
     Dates: start: 20111024
  3. SYNTHROID [Suspect]

REACTIONS (1)
  - BLOOD THYROID STIMULATING HORMONE INCREASED [None]
